FAERS Safety Report 16173788 (Version 1)
Quarter: 2019Q2

REPORT INFORMATION
  Report Type: Spontaneous
  Country: GB (occurrence: GB)
  Receive Date: 20190409
  Receipt Date: 20190409
  Transmission Date: 20190711
  Serious: Yes (Hospitalization, Other)
  Sender: FDA-Public Use
  Company Number: GB-TERSERA THERAPEUTICS LLC-2019TRS000432

PATIENT

DRUGS (14)
  1. ZOLADEX [Suspect]
     Active Substance: GOSERELIN ACETATE
     Indication: BREAST CANCER
     Dosage: UNK
     Route: 058
  2. MIRENA [Concomitant]
     Active Substance: LEVONORGESTREL
     Indication: PRODUCT USED FOR UNKNOWN INDICATION
     Dosage: COIL
     Route: 065
  3. LETROZOLE. [Suspect]
     Active Substance: LETROZOLE
     Dosage: UNK
     Route: 065
     Dates: start: 20180314
  4. KISQALI [Suspect]
     Active Substance: RIBOCICLIB
     Dosage: 400 MG, QD
     Route: 065
     Dates: start: 20180727
  5. KISQALI [Suspect]
     Active Substance: RIBOCICLIB
     Dosage: 400 MG, (ON HOLD FOR 7 DAYS IN AUG 2018)
     Route: 065
  6. LETROZOLE. [Suspect]
     Active Substance: LETROZOLE
     Dosage: UNK
     Route: 065
     Dates: start: 20180727
  7. KISQALI [Suspect]
     Active Substance: RIBOCICLIB
     Indication: BREAST CANCER
     Dosage: 600 MG, QD
     Route: 065
     Dates: start: 20171228, end: 20180122
  8. KISQALI [Suspect]
     Active Substance: RIBOCICLIB
     Dosage: 600 MG, QD
     Route: 065
     Dates: start: 20180206, end: 20180307
  9. KISQALI [Suspect]
     Active Substance: RIBOCICLIB
     Dosage: 400 MG, QD
     Route: 065
     Dates: start: 20180419
  10. LETROZOLE. [Suspect]
     Active Substance: LETROZOLE
     Indication: BREAST CANCER
     Dosage: UNK
     Route: 065
     Dates: start: 20171228, end: 20180122
  11. KISQALI [Suspect]
     Active Substance: RIBOCICLIB
     Dosage: 600 MG, QD
     Route: 065
     Dates: start: 20180314
  12. LETROZOLE. [Suspect]
     Active Substance: LETROZOLE
     Dosage: UNK
     Route: 065
     Dates: start: 20180206, end: 20180307
  13. LETROZOLE. [Suspect]
     Active Substance: LETROZOLE
     Dosage: UNK
     Route: 065
     Dates: start: 20180419
  14. LETROZOLE. [Suspect]
     Active Substance: LETROZOLE
     Dosage: ON HOLD FOR 7 DAYS IN AUG 2018
     Route: 065

REACTIONS (29)
  - Mean cell volume increased [Unknown]
  - Blood sodium decreased [Recovering/Resolving]
  - Eosinophil count decreased [Unknown]
  - Haemoglobin decreased [Unknown]
  - Urinary tract infection [Unknown]
  - Metastases to bone [Unknown]
  - White blood cell count decreased [Unknown]
  - Constipation [Recovering/Resolving]
  - Hypercalcaemia [Unknown]
  - Metastases to liver [Unknown]
  - Liver function test abnormal [Unknown]
  - Malignant neoplasm progression [Unknown]
  - General physical health deterioration [Unknown]
  - Blood potassium decreased [Unknown]
  - Vomiting [Recovering/Resolving]
  - Oral pain [Unknown]
  - Spinal fracture [Unknown]
  - Malaise [Recovering/Resolving]
  - Diarrhoea [Unknown]
  - Lethargy [Recovering/Resolving]
  - Chest pain [Recovering/Resolving]
  - Hypocalcaemia [Unknown]
  - Decreased appetite [Recovering/Resolving]
  - Platelet count decreased [Unknown]
  - Skin infection [Recovered/Resolved]
  - Neutropenia [Unknown]
  - Lower respiratory tract infection [Unknown]
  - Nausea [Recovering/Resolving]
  - Red blood cell count decreased [Unknown]

NARRATIVE: CASE EVENT DATE: 20180118
